FAERS Safety Report 5444066-9 (Version None)
Quarter: 2007Q3

REPORT INFORMATION
  Report Type: 
  Country: None (occurrence: None)
  Receive Date: 20070831
  Receipt Date: 20070828
  Transmission Date: 20080115
  Serious: Yes (Other)
  Sender: FDA-Public Use
  Company Number: 2007SP017311

PATIENT
  Sex: Female

DRUGS (6)
  1. NASONEX [Suspect]
     Indication: DRUG USE FOR UNKNOWN INDICATION
     Dosage: 50 MCG; ; NAS
     Route: 045
  2. SINGULAIR [Concomitant]
  3. COUMADIN [Concomitant]
  4. DIGITEK [Concomitant]
  5. FLONASE [Concomitant]
  6. SPIRIVA [Concomitant]

REACTIONS (3)
  - EYE HAEMORRHAGE [None]
  - OCULAR VASCULAR DISORDER [None]
  - VITREOUS FLOATERS [None]
